FAERS Safety Report 7855137-1 (Version None)
Quarter: 2011Q4

REPORT INFORMATION
  Report Type: 
  Country: None (occurrence: None)
  Receive Date: 20111026
  Receipt Date: 20111024
  Transmission Date: 20120403
  Serious: Yes (Death, Hospitalization, Other)
  Sender: FDA-Public Use
  Company Number: PHHY2011CR93876

PATIENT
  Age: 73 Year
  Sex: Female

DRUGS (6)
  1. INSULIN [Concomitant]
  2. ZOMETA [Suspect]
     Indication: MULTIPLE MYELOMA
     Dosage: ON A MONTHLY BASIS
  3. IRBESARTAN [Concomitant]
  4. FUROSEMIDE [Concomitant]
  5. DEXAMETHASONE [Concomitant]
  6. MELPHALAN HYDROCHLORIDE [Concomitant]

REACTIONS (3)
  - HAEMOGLOBIN DECREASED [None]
  - PNEUMONIA [None]
  - DEATH [None]
